FAERS Safety Report 17286505 (Version 1)
Quarter: 2020Q1

REPORT INFORMATION
  Report Type: Spontaneous
  Country: US (occurrence: US)
  Receive Date: 20200119
  Receipt Date: 20200119
  Transmission Date: 20200409
  Serious: Yes (Death, Other)
  Sender: FDA-Public Use
  Company Number: US-JNJFOC-20200113210

PATIENT

DRUGS (1)
  1. IMODIUM [Suspect]
     Active Substance: LOPERAMIDE HYDROCHLORIDE
     Indication: PRODUCT USED FOR UNKNOWN INDICATION
     Route: 065

REACTIONS (5)
  - Electrocardiogram QT prolonged [Unknown]
  - Sudden cardiac death [Fatal]
  - Torsade de pointes [Unknown]
  - Cardiomyopathy [Unknown]
  - Electrocardiogram QRS complex prolonged [Unknown]
